FAERS Safety Report 7674694-1 (Version None)
Quarter: 2011Q3

REPORT INFORMATION
  Report Type: 
  Country: None (occurrence: None)
  Receive Date: 20110810
  Receipt Date: 20110722
  Transmission Date: 20111222
  Serious: Yes (Death, Hospitalization)
  Sender: FDA-Public Use
  Company Number: US-GLAXOSMITHKLINE-A0875985A

PATIENT
  Age: 58 Year
  Sex: Male
  Weight: 110.5 kg

DRUGS (9)
  1. CLORAZEPATE DIPOTASSIUM [Concomitant]
  2. AVANDIA [Suspect]
     Indication: DIABETES MELLITUS
     Dosage: 4MG PER DAY
     Route: 048
     Dates: end: 20050601
  3. ZANTAC [Concomitant]
  4. LOPRESSOR [Concomitant]
  5. GLIPIZIDE [Concomitant]
  6. DARVOCET [Concomitant]
  7. METFORMIN HCL [Concomitant]
  8. LIPITOR [Concomitant]
  9. GLUCOTROL [Concomitant]

REACTIONS (3)
  - SUDDEN CARDIAC DEATH [None]
  - SEPSIS [None]
  - TRANSIENT ISCHAEMIC ATTACK [None]
